FAERS Safety Report 6054399-3 (Version None)
Quarter: 2009Q1

REPORT INFORMATION
  Report Type: 
  Country: None (occurrence: None)
  Receive Date: 20090127
  Receipt Date: 20090119
  Transmission Date: 20090719
  Serious: Yes (Other)
  Sender: FDA-Public Use
  Company Number: PHEH2009US00937

PATIENT
  Sex: Female

DRUGS (3)
  1. TEKTURNA [Suspect]
     Indication: BLOOD PRESSURE ABNORMAL
     Dosage: 300 MG, UNK
  2. NIFEDIPINE [Concomitant]
     Dosage: 30 MG, UNK
  3. ACTIMOL [Concomitant]

REACTIONS (2)
  - ANEURYSM [None]
  - SURGERY [None]
